FAERS Safety Report 4977064-X (Version None)
Quarter: 2006Q2

REPORT INFORMATION
  Report Type: 
  Country: None (occurrence: None)
  Receive Date: 20060412
  Receipt Date: 20060328
  Transmission Date: 20061013
  Serious: Yes (Other)
  Sender: FDA-Public Use
  Company Number: 2006BH007044

PATIENT

DRUGS (1)
  1. ADENOSINE VIAL [Suspect]
     Indication: DIAGNOSTIC PROCEDURE
     Dosage: 140 UG/KG;/MIN;IV

REACTIONS (2)
  - BRONCHOSPASM [None]
  - INFUSION RELATED REACTION [None]
